FAERS Safety Report 9008040 (Version 2)
Quarter: 2013Q1

REPORT INFORMATION
  Report Type: Spontaneous
  Country: DE (occurrence: None)
  Receive Date: 20121227
  Receipt Date: 20130226
  Transmission Date: 20140127
  Serious: Yes (Other)
  Sender: FDA-Public Use
  Company Number: ACO_33474_2012

PATIENT
  Age: 66 Year
  Sex: Female

DRUGS (3)
  1. FAMPYRA (DALFAMPRIDINE) [Suspect]
     Indication: GAIT DISTURBANCE
     Route: 048
     Dates: start: 20120920
  2. AVONEX (INTERFERON BETA-1A) [Concomitant]
  3. VENLAFAXINE (VENLAFAXINE) [Concomitant]

REACTIONS (2)
  - Convulsion [None]
  - Multiple sclerosis relapse [None]
